FAERS Safety Report 5348482-5 (Version None)
Quarter: 2007Q2

REPORT INFORMATION
  Report Type: 
  Country: None (occurrence: None)
  Receive Date: 20070606
  Receipt Date: 20070530
  Transmission Date: 20071010
  Serious: Yes (Death, Hospitalization)
  Sender: FDA-Public Use
  Company Number: ES-PFIZER INC-2007043087

PATIENT
  Age: 75 Year
  Sex: Female

DRUGS (3)
  1. SILDENAFIL (PAH) [Suspect]
     Indication: PULMONARY HYPERTENSION
     Dosage: DAILY DOSE:75MG
     Route: 048
     Dates: start: 20060303, end: 20060324
  2. AMIODARONE HCL [Suspect]
     Dosage: DAILY DOSE:75MG
     Route: 048
     Dates: start: 20060301, end: 20060324
  3. ALLOPURINOL [Suspect]
     Dosage: DAILY DOSE:300MG
     Route: 048
     Dates: start: 20060301, end: 20060324

REACTIONS (3)
  - CARDIAC ARREST [None]
  - RASH ERYTHEMATOUS [None]
  - RESPIRATORY DEPRESSION [None]
